FAERS Safety Report 6341537-8 (Version None)
Quarter: 2009Q3

REPORT INFORMATION
  Report Type: 
  Country: None (occurrence: None)
  Receive Date: 20090904
  Receipt Date: 20090901
  Transmission Date: 20100115
  Serious: Yes (Other)
  Sender: FDA-Public Use
  Company Number: US-MERCK-0909USA00128

PATIENT
  Age: 88 Year
  Sex: Male

DRUGS (12)
  1. DECADRON [Suspect]
     Indication: DRUG USE FOR UNKNOWN INDICATION
     Route: 048
  2. ASPIRIN [Concomitant]
     Indication: DRUG USE FOR UNKNOWN INDICATION
     Route: 048
  3. COREG [Concomitant]
     Indication: DRUG USE FOR UNKNOWN INDICATION
     Route: 048
  4. DECADRON [Suspect]
     Indication: DRUG USE FOR UNKNOWN INDICATION
     Route: 042
  5. DECADRON [Suspect]
     Route: 042
  6. LORAZEPAM [Concomitant]
     Indication: SLEEP DISORDER
     Route: 048
  7. FERROUS SULFATE [Concomitant]
     Indication: DRUG USE FOR UNKNOWN INDICATION
     Route: 048
  8. MYLERAN [Concomitant]
     Indication: DRUG USE FOR UNKNOWN INDICATION
     Route: 048
  9. PERCOCET [Concomitant]
     Indication: PAIN
     Route: 065
  10. PREDNISONE [Concomitant]
     Indication: DRUG USE FOR UNKNOWN INDICATION
     Route: 048
  11. TERAZOSIN HYDROCHLORIDE [Concomitant]
     Indication: DRUG USE FOR UNKNOWN INDICATION
     Route: 048
  12. REVLIMID [Suspect]
     Indication: MULTIPLE MYELOMA
     Route: 048
     Dates: start: 20090529

REACTIONS (8)
  - BACK PAIN [None]
  - CONSTIPATION [None]
  - DIZZINESS [None]
  - FATIGUE [None]
  - GAIT DISTURBANCE [None]
  - NECK PAIN [None]
  - PANCYTOPENIA [None]
  - VERTIGO [None]
